FAERS Safety Report 8521875 (Version 2)
Quarter: 2012Q4

REPORT INFORMATION
  Report Type: 
  Country: FR (occurrence: FR)
  Receive Date: 20120419
  Receipt Date: 20120906
  Transmission Date: 20130627
  Serious: Yes (Other)
  Sender: FDA-Public Use
  Company Number: FR-ROCHE-1060281

PATIENT
  Age: 70 Year
  Sex: Female

DRUGS (3)
  1. XELODA [Suspect]
     Indication: BREAST CANCER
     Route: 065
     Dates: start: 20100420, end: 20100421
  2. ZOMETA [Suspect]
     Indication: PRODUCT USED FOR UNKNOWN INDICATION
     Route: 042
     Dates: start: 20100415, end: 20101021
  3. FEMARA [Concomitant]
     Indication: BREAST CANCER
     Route: 048
     Dates: start: 20100401

REACTIONS (1)
  - Osteonecrosis of jaw [Recovered/Resolved with Sequelae]
